FAERS Safety Report 9714543 (Version 5)
Quarter: 2014Q1

REPORT INFORMATION
  Report Type: Report from Study
  Country: JP (occurrence: JP)
  Receive Date: 20131126
  Receipt Date: 20140305
  Transmission Date: 20141002
  Serious: Yes (Hospitalization)
  Sender: FDA-Public Use
  Company Number: JP-CUBIST PHARMACEUTICAL, INC.-2013CBST001135

PATIENT
  Sex: 0

DRUGS (2)
  1. CUBICIN [Suspect]
     Indication: STAPHYLOCOCCAL SKIN INFECTION
     Dosage: 4 MG/KG, ONCE A DAY
     Route: 041
     Dates: start: 20131015, end: 20131019
  2. CUBICIN [Suspect]
     Indication: SOFT TISSUE INFECTION

REACTIONS (1)
  - Drug-induced liver injury [Recovering/Resolving]
